APPROVED DRUG PRODUCT: TRACRIUM
Active Ingredient: ATRACURIUM BESYLATE
Strength: 10MG/ML **Federal Register determination that product was not discontinued or withdrawn for safety or effectiveness reasons**
Dosage Form/Route: INJECTABLE;INJECTION
Application: N018831 | Product #002
Applicant: HOSPIRA INC
Approved: Jun 20, 1985 | RLD: Yes | RS: No | Type: DISCN